FAERS Safety Report 14810450 (Version 1)
Quarter: 2018Q2

REPORT INFORMATION
  Report Type: Spontaneous
  Country: US (occurrence: US)
  Receive Date: 20180425
  Receipt Date: 20180425
  Transmission Date: 20180711
  Serious: No
  Sender: FDA-Public Use
  Company Number: US-BIOGEN-2018BI00557431

PATIENT
  Sex: Female

DRUGS (1)
  1. AVONEX [Suspect]
     Active Substance: INTERFERON BETA-1A
     Indication: MULTIPLE SCLEROSIS
     Route: 065

REACTIONS (8)
  - Feeling hot [Recovered/Resolved]
  - Influenza [Recovered/Resolved]
  - Amnesia [Recovered/Resolved]
  - Influenza like illness [Unknown]
  - Cutaneous symptom [Recovered/Resolved]
  - Gastroenteritis norovirus [Recovered/Resolved]
  - Depression [Recovered/Resolved]
  - Central nervous system lesion [Not Recovered/Not Resolved]
